FAERS Safety Report 16867857 (Version 2)
Quarter: 2020Q3

REPORT INFORMATION
  Report Type: Spontaneous
  Country: US (occurrence: US)
  Receive Date: 20190930
  Receipt Date: 20200924
  Transmission Date: 20201102
  Serious: No
  Sender: FDA-Public Use
  Company Number: US-ASTRAZENECA-2019SF33921

PATIENT
  Age: 73 Year
  Sex: Male
  Weight: 107.5 kg

DRUGS (13)
  1. OXYCODONE [Concomitant]
     Active Substance: OXYCODONE
     Indication: PAIN
     Dosage: 15 MG
     Route: 048
     Dates: start: 1999
  2. METFORMIN [Concomitant]
     Active Substance: METFORMIN HYDROCHLORIDE
     Indication: DIABETES MELLITUS
     Route: 048
     Dates: end: 201902
  3. ADVAIR HFA [Concomitant]
     Active Substance: FLUTICASONE PROPIONATE\SALMETEROL XINAFOATE
     Indication: RESPIRATION ABNORMAL
     Route: 055
     Dates: start: 1999
  4. MOVANTIK [Suspect]
     Active Substance: NALOXEGOL OXALATE
     Indication: CONSTIPATION
     Dosage: 12.5 MG
     Route: 048
     Dates: start: 201908
  5. TIZANIDIE [Concomitant]
     Indication: MUSCLE DISORDER
     Dosage: 4.0MG AS REQUIRED
     Route: 048
     Dates: start: 2004
  6. LEVIMER [Concomitant]
     Indication: DIABETES MELLITUS
     Dosage: 10 MG
     Dates: start: 201907
  7. CARDURA [Concomitant]
     Active Substance: DOXAZOSIN MESYLATE
     Indication: THYROID DISORDER
     Dosage: 4 MG
     Route: 048
     Dates: start: 2014
  8. INCRUSE ELLIPTA [Concomitant]
     Active Substance: UMECLIDINIUM BROMIDE
     Indication: RESPIRATION ABNORMAL
     Route: 055
     Dates: start: 1999
  9. LEVOTHOROXINE [Concomitant]
     Route: 048
  10. TARADJENTA [Concomitant]
     Indication: DIABETES MELLITUS
     Dosage: 5 MG
     Route: 048
     Dates: start: 2018
  11. FLUTICASONE. [Concomitant]
     Active Substance: FLUTICASONE
     Indication: HYPERSENSITIVITY
     Dosage: 50 MG
     Route: 045
     Dates: start: 2009
  12. PRAVASTATIN. [Concomitant]
     Active Substance: PRAVASTATIN
     Indication: PROSTATIC DISORDER
     Dosage: 40 MG
     Route: 048
     Dates: start: 1999
  13. GABAPENTIN. [Concomitant]
     Active Substance: GABAPENTIN
     Indication: NEPHROPATHY
     Dosage: 300 MG
     Route: 048
     Dates: start: 1999

REACTIONS (2)
  - Constipation [Unknown]
  - Intentional product misuse [Unknown]

NARRATIVE: CASE EVENT DATE: 201908
